FAERS Safety Report 21507388 (Version 1)
Quarter: 2022Q4

REPORT INFORMATION
  Report Type: Spontaneous
  Country: US (occurrence: None)
  Receive Date: 20221025
  Receipt Date: 20221025
  Transmission Date: 20230113
  Serious: Yes (Death)
  Sender: FDA-Public Use
  Company Number: None

PATIENT
  Age: 58 Year
  Sex: Male
  Weight: 75.02 kg

DRUGS (7)
  1. BRAFTOVI [Suspect]
     Active Substance: ENCORAFENIB
     Indication: Rectosigmoid cancer
     Dosage: FREQUENCY : DAILY;?
     Route: 048
     Dates: start: 202207, end: 20220901
  2. BUPRENOPHRINE [Concomitant]
  3. CYMBALTA [Concomitant]
  4. GABAPENTIN [Concomitant]
  5. OMEPRAZOLE [Concomitant]
  6. ONDANSETRON [Concomitant]
  7. SENNA S [Concomitant]

REACTIONS (1)
  - Hospice care [None]
